FAERS Safety Report 23743582 (Version 4)
Quarter: 2024Q2

REPORT INFORMATION
  Report Type: Spontaneous
  Country: US (occurrence: US)
  Receive Date: 20240415
  Receipt Date: 20240524
  Transmission Date: 20240716
  Serious: Yes (Disabling, Other)
  Sender: FDA-Public Use
  Company Number: US-PIERREL S.P.A.-2023PIR00066

PATIENT
  Age: 55 Year
  Sex: Male
  Weight: 83.9 kg

DRUGS (1)
  1. ORABLOC [Suspect]
     Active Substance: ARTICAINE HYDROCHLORIDE\EPINEPHRINE BITARTRATE
     Indication: Tooth extraction
     Dosage: ^ALMOST ONE CARPULE INJECTION^ TO AREA OF TOOTH NUMBER 15
     Dates: start: 20230930, end: 20230930

REACTIONS (14)
  - Gait inability [Recovering/Resolving]
  - Gangrene [Not Recovered/Not Resolved]
  - Rash [Not Recovered/Not Resolved]
  - Insomnia [Not Recovered/Not Resolved]
  - Renal pain [Not Recovered/Not Resolved]
  - Electric shock sensation [Not Recovered/Not Resolved]
  - Skin exfoliation [Not Recovered/Not Resolved]
  - Skin burning sensation [Not Recovered/Not Resolved]
  - Blister [Recovering/Resolving]
  - Mobility decreased [Not Recovered/Not Resolved]
  - Peripheral swelling [Unknown]
  - Pain in extremity [Not Recovered/Not Resolved]
  - Scab [Not Recovered/Not Resolved]
  - Paraesthesia [Not Recovered/Not Resolved]

NARRATIVE: CASE EVENT DATE: 20230930
